FAERS Safety Report 11700157 (Version 2)
Quarter: 2015Q4

REPORT INFORMATION
  Report Type: Spontaneous
  Country: US (occurrence: US)
  Receive Date: 20151105
  Receipt Date: 20151110
  Transmission Date: 20160304
  Serious: No
  Sender: FDA-Public Use
  Company Number: US-ASTRAZENECA-2015SF05231

PATIENT
  Age: 57 Year
  Sex: Female
  Weight: 92.5 kg

DRUGS (14)
  1. CYCLOBENZAPRINE [Concomitant]
     Active Substance: CYCLOBENZAPRINE
     Indication: INTERVERTEBRAL DISC DEGENERATION
     Route: 048
     Dates: start: 2012
  2. REGLAN [Concomitant]
     Active Substance: METOCLOPRAMIDE HYDROCHLORIDE
     Indication: GASTRIC ULCER
     Route: 048
     Dates: start: 20140611
  3. NASONEX [Concomitant]
     Active Substance: MOMETASONE FUROATE
     Indication: HYPERSENSITIVITY
     Route: 045
     Dates: start: 2011
  4. NEXIUM [Suspect]
     Active Substance: ESOMEPRAZOLE MAGNESIUM
     Indication: GASTROOESOPHAGEAL REFLUX DISEASE
     Route: 048
     Dates: start: 201406
  5. ZOLPIDEM TARTRATE. [Concomitant]
     Active Substance: ZOLPIDEM TARTRATE
     Indication: SLEEP DISORDER
     Route: 048
     Dates: start: 2001
  6. LYRICA [Concomitant]
     Active Substance: PREGABALIN
     Indication: NEUROPATHY PERIPHERAL
     Route: 048
     Dates: start: 20090225
  7. TRIAMTERENE HCTZ [Concomitant]
     Active Substance: HYDROCHLOROTHIAZIDE\TRIAMTERENE
     Indication: EAR DISORDER
     Route: 048
     Dates: start: 2012
  8. CLARITIN [Concomitant]
     Active Substance: LORATADINE
     Indication: HYPERSENSITIVITY
     Route: 048
     Dates: start: 2011
  9. ANUCORT-HC [Concomitant]
     Active Substance: HYDROCORTISONE ACETATE
     Indication: HAEMORRHOIDS
     Route: 048
     Dates: start: 1999
  10. NEXIUM [Suspect]
     Active Substance: ESOMEPRAZOLE MAGNESIUM
     Indication: GASTROOESOPHAGEAL REFLUX DISEASE
     Route: 048
     Dates: start: 201004, end: 201010
  11. CARVEDILOL. [Concomitant]
     Active Substance: CARVEDILOL
     Indication: BLOOD PRESSURE DECREASED
     Route: 048
     Dates: start: 2012
  12. NEXIUM [Suspect]
     Active Substance: ESOMEPRAZOLE MAGNESIUM
     Indication: GASTROOESOPHAGEAL REFLUX DISEASE
     Route: 048
     Dates: start: 2001, end: 201004
  13. PENTASA [Concomitant]
     Active Substance: MESALAMINE
     Indication: COLITIS ULCERATIVE
     Route: 048
     Dates: start: 201502
  14. LIBRAX [Concomitant]
     Active Substance: CHLORDIAZEPOXIDE HYDROCHLORIDE\CLIDINIUM BROMIDE
     Indication: IRRITABLE BOWEL SYNDROME
     Route: 048
     Dates: start: 201311

REACTIONS (30)
  - Hypoaesthesia [Unknown]
  - Colitis [Unknown]
  - Oropharyngeal discomfort [Unknown]
  - Middle ear effusion [Unknown]
  - Blood pressure decreased [Unknown]
  - Activities of daily living impaired [Unknown]
  - Off label use [Unknown]
  - Gastrooesophageal reflux disease [Unknown]
  - Feeling abnormal [Unknown]
  - Oesophageal hypomotility [Unknown]
  - Barrett^s oesophagus [Unknown]
  - Autonomic nervous system imbalance [Unknown]
  - Neuropathy peripheral [Unknown]
  - Salivary hypersecretion [Unknown]
  - Tooth injury [Unknown]
  - Cystitis [Unknown]
  - Fall [Unknown]
  - Choking [Unknown]
  - Hiatus hernia [Unknown]
  - Syncope [Unknown]
  - Gastric ulcer [Unknown]
  - Diarrhoea [Unknown]
  - Muscle disorder [Unknown]
  - Musculoskeletal discomfort [Unknown]
  - Intervertebral disc protrusion [Unknown]
  - Irritable bowel syndrome [Unknown]
  - Dizziness [Unknown]
  - Intervertebral disc degeneration [Unknown]
  - Pain [Unknown]
  - Malnutrition [Unknown]

NARRATIVE: CASE EVENT DATE: 2004
